FAERS Safety Report 5692123-4 (Version None)
Quarter: 2008Q2

REPORT INFORMATION
  Report Type: 
  Country: None (occurrence: None)
  Receive Date: 20080402
  Receipt Date: 20080321
  Transmission Date: 20081010
  Serious: Yes (Hospitalization)
  Sender: FDA-Public Use
  Company Number: GB-PFIZER INC-2008026440

PATIENT
  Age: 88 Year
  Sex: Male

DRUGS (6)
  1. PREGABALIN [Suspect]
     Indication: BACK PAIN
     Route: 048
     Dates: start: 20080214, end: 20080307
  2. CO-AMILOFRUSE [Concomitant]
     Indication: HYPERTENSION
     Route: 048
  3. METOCLOPRAMIDE [Concomitant]
     Indication: NAUSEA
     Route: 048
  4. OMEPRAZOLE [Concomitant]
     Route: 048
  5. RAMIPRIL [Concomitant]
     Indication: HYPERTENSION
     Route: 048
  6. TAMSULOSIN HCL [Concomitant]
     Indication: BENIGN PROSTATIC HYPERPLASIA
     Route: 048

REACTIONS (3)
  - FALL [None]
  - LIVER FUNCTION TEST ABNORMAL [None]
  - URINARY TRACT INFECTION [None]
